FAERS Safety Report 7202247-8 (Version None)
Quarter: 2010Q4

REPORT INFORMATION
  Report Type: 
  Country: None (occurrence: None)
  Receive Date: 20101220
  Receipt Date: 20101202
  Transmission Date: 20110411
  Serious: Yes (Other)
  Sender: FDA-Public Use
  Company Number: 10-540

PATIENT
  Sex: Male
  Weight: 135 kg

DRUGS (3)
  1. ALEVE [Suspect]
     Dosage: 2640 MG ORAL
     Route: 048
  2. ALEVE [Suspect]
     Dosage: 440 MG ORAL
     Route: 048
  3. ALCOHOL (ETHANOL) [Concomitant]

REACTIONS (4)
  - ALCOHOL USE [None]
  - DRUG ABUSE [None]
  - HANGOVER [None]
  - LOSS OF CONSCIOUSNESS [None]
